FAERS Safety Report 5027061-3 (Version None)
Quarter: 2006Q2

REPORT INFORMATION
  Report Type: 
  Country: None (occurrence: None)
  Receive Date: 20060609
  Receipt Date: 20060531
  Transmission Date: 20061013
  Serious: Yes (Other)
  Sender: FDA-Public Use
  Company Number: 2006048705

PATIENT
  Age: 80 Year
  Sex: Female
  Weight: 78.4723 kg

DRUGS (8)
  1. NARDIL [Suspect]
     Indication: DEPRESSION
     Dosage: 15 MG, ORAL
     Route: 048
  2. ARICEPT [Concomitant]
  3. NAMENDA [Concomitant]
  4. AVALIDE [Concomitant]
  5. VITAMIN D [Concomitant]
  6. LASIX [Concomitant]
  7. KLOR-CON [Concomitant]
  8. ACETAMINOPHEN [Concomitant]

REACTIONS (6)
  - CONDITION AGGRAVATED [None]
  - DEPRESSION [None]
  - DRUG INEFFECTIVE [None]
  - HYPERSOMNIA [None]
  - SOMNOLENCE [None]
  - SURGERY [None]
